FAERS Safety Report 8291202-5 (Version None)
Quarter: 2012Q2

REPORT INFORMATION
  Report Type: 
  Country: None (occurrence: None)
  Receive Date: 20120417
  Receipt Date: 20120407
  Transmission Date: 20120825
  Serious: Yes (Hospitalization)
  Sender: FDA-Public Use
  Company Number: US-BAYER-2011-053036

PATIENT
  Sex: Female
  Weight: 69 kg

DRUGS (4)
  1. DROSPIRENONE AND ETHINYL ESTRADIOL [Suspect]
     Indication: ACNE
     Dosage: UNK
     Route: 048
     Dates: start: 20090101
  2. AVIANE-28 [Concomitant]
     Dosage: UNK
     Dates: start: 20090101, end: 20100101
  3. CELEXA [Concomitant]
     Indication: DEPRESSION
     Dosage: UNK
     Dates: start: 20000101, end: 20100101
  4. ALLEGRA [Concomitant]
     Indication: MULTIPLE ALLERGIES
     Dosage: UNK
     Dates: start: 20080101

REACTIONS (5)
  - FEAR [None]
  - GALLBLADDER INJURY [None]
  - ANXIETY [None]
  - PAIN [None]
  - ANHEDONIA [None]
